FAERS Safety Report 10703782 (Version 3)
Quarter: 2015Q1

REPORT INFORMATION
  Report Type: Spontaneous
  Country: JP (occurrence: None)
  Receive Date: 20150108
  Receipt Date: 20150121
  Transmission Date: 20150721
  Serious: Yes (Hospitalization)
  Sender: FDA-Public Use
  Company Number: 2691516

PATIENT
  Age: 80 Year
  Sex: Male
  Weight: 62.5 kg

DRUGS (18)
  1. OXYCODONE HYDROCHLORIDE. [Concomitant]
     Active Substance: OXYCODONE HYDROCHLORIDE
  2. MAGNESIUM OXIDE. [Concomitant]
     Active Substance: MAGNESIUM OXIDE
  3. PHYSIOLOGICAL SALINE SOLUTION [Concomitant]
     Active Substance: SODIUM CHLORIDE
  4. DEXAMETHASONE SODIUM PHOSPHATE. [Concomitant]
     Active Substance: DEXAMETHASONE SODIUM PHOSPHATE
  5. SENNOSIDE A+B [Concomitant]
     Active Substance: SENNOSIDES A AND B
  6. OLMESARTAN MEDOXOMIL. [Concomitant]
     Active Substance: OLMESARTAN MEDOXOMIL
  7. ASPIRIN. [Concomitant]
     Active Substance: ASPIRIN
  8. GEMCITABINE HYDROCHLORIDE. [Suspect]
     Active Substance: GEMCITABINE HYDROCHLORIDE
     Indication: PANCREATIC CARCINOMA
     Dosage: 1000 MG/M 2 MILLIGRAM(S)/SQ. METER (UNKNOWN), INTRAVENOUS (NOT OTHERWISE SPECIFIED) ??
     Route: 042
     Dates: start: 20141110, end: 20141212
  9. GEMCITABINE HYDROCHLORIDE. [Concomitant]
     Active Substance: GEMCITABINE HYDROCHLORIDE
     Indication: PANCREATIC CARCINOMA
     Dosage: 700  MG/M 2 MILLIGRAM(S)/SQ. METER (UNKNOWN), INTRAVENOUS (NOT OTHERWISE SPECIFIED) ??
     Dates: start: 20141110, end: 20141212
  10. CELECOXIB. [Concomitant]
     Active Substance: CELECOXIB
  11. DIASTASE [Concomitant]
     Active Substance: DIASTASE
  12. YOKUKANSAN [Concomitant]
     Active Substance: HERBALS
  13. PREGABALIN. [Concomitant]
     Active Substance: PREGABALIN
  14. DEXAMETHASONE. [Concomitant]
     Active Substance: DEXAMETHASONE
  15. MOSAPRIDE CITRATE [Concomitant]
     Active Substance: MOSAPRIDE CITRATE
  16. FAMOTIDINE. [Concomitant]
     Active Substance: FAMOTIDINE
  17. NIFEDIPINE. [Concomitant]
     Active Substance: NIFEDIPINE
  18. GRANISETRON HYDROCHLORIDE. [Suspect]
     Active Substance: GRANISETRON HYDROCHLORIDE

REACTIONS (2)
  - Dysstasia [None]
  - Rhabdomyolysis [None]

NARRATIVE: CASE EVENT DATE: 20141219
